FAERS Safety Report 6773493-2 (Version None)
Quarter: 2010Q2

REPORT INFORMATION
  Report Type: 
  Country: None (occurrence: None)
  Receive Date: 20100616
  Receipt Date: 20100513
  Transmission Date: 20101027
  Serious: No
  Sender: FDA-Public Use
  Company Number: US-ABBOTT-10P-163-0645508-00

PATIENT
  Sex: Female
  Weight: 89.438 kg

DRUGS (6)
  1. TRILIPIX [Suspect]
     Indication: BLOOD CHOLESTEROL
     Dates: start: 20100510
  2. TRILIPIX [Suspect]
     Indication: BLOOD TRIGLYCERIDES
  3. PRAVASTATIN [Concomitant]
     Indication: BLOOD CHOLESTEROL
     Dosage: 2-40MG TABLETS DAILY
  4. LISINOPRIL AND HYDROCHLOROTHIAZIDE [Concomitant]
     Indication: HYPERTENSION
     Dosage: 20/25 MG DAILY
  5. CLONIDINE [Concomitant]
     Indication: BLOOD PRESSURE
     Dosage: AT BEDTIME
  6. FLOUXETINE [Concomitant]
     Indication: DEPRESSION

REACTIONS (1)
  - FATIGUE [None]
